FAERS Safety Report 5602315-8 (Version None)
Quarter: 2008Q1

REPORT INFORMATION
  Report Type: 
  Country: None (occurrence: None)
  Receive Date: 20080125
  Receipt Date: 20080117
  Transmission Date: 20080703
  Serious: Yes (Other)
  Sender: FDA-Public Use
  Company Number: US-ROCHE-464543

PATIENT
  Age: 60 Year
  Sex: Male

DRUGS (2)
  1. PEGASYS [Suspect]
     Dosage: STRENGTH REPORTED AS 180 MCG/0.5 ML
     Route: 058
     Dates: start: 20060201, end: 20070301
  2. RIBAVIRIN [Suspect]
     Route: 048
     Dates: start: 20060201, end: 20070301

REACTIONS (7)
  - ABDOMINAL PAIN UPPER [None]
  - CHROMATURIA [None]
  - DEPRESSION [None]
  - INSOMNIA [None]
  - OCULAR ICTERUS [None]
  - OCULAR RETROBULBAR HAEMORRHAGE [None]
  - VIRAL LOAD INCREASED [None]
